FAERS Safety Report 17791670 (Version 1)
Quarter: 2020Q2

REPORT INFORMATION
  Report Type: Report from Study
  Country: CN (occurrence: CN)
  Receive Date: 20200515
  Receipt Date: 20200515
  Transmission Date: 20200714
  Serious: Yes (Other)
  Sender: FDA-Public Use
  Company Number: CN-ELI_LILLY_AND_COMPANY-CN202005003462

PATIENT
  Age: 50 Year
  Sex: Male

DRUGS (2)
  1. GEMCITABINE HYDROCHLORIDE. [Suspect]
     Active Substance: GEMCITABINE HYDROCHLORIDE
     Indication: NON-SMALL CELL LUNG CANCER
     Dosage: UNK, UNKNOWN
     Route: 065
  2. APATINIB [Concomitant]
     Active Substance: APATINIB
     Indication: NON-SMALL CELL LUNG CANCER
     Dosage: 250 MG, DAILY
     Route: 048

REACTIONS (1)
  - Liver injury [Unknown]
